FAERS Safety Report 10386529 (Version 1)
Quarter: 2014Q3

REPORT INFORMATION
  Report Type: Spontaneous
  Country: US (occurrence: None)
  Receive Date: 20140814
  Receipt Date: 20140814
  Transmission Date: 20150326
  Serious: Yes (Death, Hospitalization)
  Sender: FDA-Public Use
  Company Number: None

PATIENT
  Age: 51 Year
  Sex: Male
  Weight: 74.1 kg

DRUGS (11)
  1. MAGNESIUM OXIDE. [Concomitant]
     Active Substance: MAGNESIUM OXIDE
  2. OXYBUYNIN [Concomitant]
  3. TAMUSLOSIN [Concomitant]
  4. RIFAXIMIN [Concomitant]
     Active Substance: RIFAXIMIN
  5. OLYSIO [Suspect]
     Active Substance: SIMEPREVIR
     Indication: HEPATITIS C
     Route: 048
     Dates: start: 20140415, end: 20140706
  6. HYOSCYAMINE SULFATE. [Concomitant]
     Active Substance: HYOSCYAMINE SULFATE
  7. VALGANCICLOVIR [Concomitant]
     Active Substance: VALGANCICLOVIR
  8. LEVOTHYROXINE [Concomitant]
     Active Substance: LEVOTHYROXINE
  9. URSODIOL. [Concomitant]
     Active Substance: URSODIOL
  10. CYCLOSPORINE(NEORAL) [Concomitant]
  11. SOVALDI [Suspect]
     Active Substance: SOFOSBUVIR
     Indication: HEPATITIS C
     Route: 048
     Dates: start: 20140415, end: 20140706

REACTIONS (10)
  - Continuous haemodiafiltration [None]
  - Acute respiratory distress syndrome [None]
  - Cardiac arrest [None]
  - Mental status changes [None]
  - Renal failure acute [None]
  - Hyperbilirubinaemia [None]
  - Haemorrhage [None]
  - Cytomegalovirus viraemia [None]
  - Unresponsive to stimuli [None]
  - Pulseless electrical activity [None]

NARRATIVE: CASE EVENT DATE: 20140703
